FAERS Safety Report 7242200-1 (Version None)
Quarter: 2011Q1

REPORT INFORMATION
  Report Type: 
  Country: None (occurrence: None)
  Receive Date: 20110124
  Receipt Date: 20110112
  Transmission Date: 20110831
  Serious: Yes (Hospitalization)
  Sender: FDA-Public Use
  Company Number: FR-GILEAD-2011-0035230

PATIENT
  Age: 19 Year
  Sex: Male

DRUGS (5)
  1. POSACONAZOLE [Suspect]
     Indication: FUNGAL INFECTION
     Dates: start: 20071107
  2. DEFEROXAMINE MESYLATE [Suspect]
     Indication: HAEMOCHROMATOSIS
     Dates: start: 20071204
  3. NEUPOGEN [Suspect]
     Indication: ANAEMIA
     Dates: start: 20071026
  4. VISTIDE [Suspect]
     Indication: ADENOVIRUS INFECTION
     Dates: start: 20071130
  5. ALEMTUZUMAB [Concomitant]
     Indication: LYMPHOPROLIFERATIVE DISORDER

REACTIONS (1)
  - PULMONARY HYPERTENSION [None]
